FAERS Safety Report 24165328 (Version 1)
Quarter: 2024Q3

REPORT INFORMATION
  Report Type: Spontaneous
  Country: US (occurrence: US)
  Receive Date: 20240802
  Receipt Date: 20240802
  Transmission Date: 20241016
  Serious: Yes (Hospitalization)
  Sender: NOVITIUM PHARMA
  Company Number: US-NOVITIUMPHARMA-2024USNVP01469

PATIENT
  Age: 45 Day
  Sex: Male

DRUGS (12)
  1. PYRAZINAMIDE [Suspect]
     Active Substance: PYRAZINAMIDE
     Indication: Congenital tuberculosis
  2. ISONIAZID [Concomitant]
     Active Substance: ISONIAZID
     Indication: Congenital tuberculosis
     Route: 048
  3. ISONIAZID [Concomitant]
     Active Substance: ISONIAZID
     Dosage: 15MG/KG/DAY
  4. PYRIDOXINE [Concomitant]
     Active Substance: PYRIDOXINE
     Indication: Congenital tuberculosis
  5. RIFAMPIN [Concomitant]
     Active Substance: RIFAMPIN
     Indication: Congenital tuberculosis
     Route: 048
  6. RIFAMPIN [Concomitant]
     Active Substance: RIFAMPIN
  7. ETHAMBUTOL [Concomitant]
     Active Substance: ETHAMBUTOL HYDROCHLORIDE
     Indication: Congenital tuberculosis
  8. VANCOMYCIN [Concomitant]
     Active Substance: VANCOMYCIN
     Indication: Product used for unknown indication
     Dosage: 15MG/KG/DOSE
  9. PIPERACILLIN AND TAZOBACTAM [Concomitant]
     Active Substance: PIPERACILLIN SODIUM\TAZOBACTAM SODIUM
     Indication: Sepsis neonatal
  10. MEROPENEM [Concomitant]
     Active Substance: MEROPENEM
     Indication: Tuberculosis gastrointestinal
  11. AMIKACIN [Concomitant]
     Active Substance: AMIKACIN
     Indication: Tuberculosis
  12. LEVOFLOXACIN [Concomitant]
     Active Substance: LEVOFLOXACIN
     Indication: Tuberculosis

REACTIONS (1)
  - Paradoxical drug reaction [Recovered/Resolved]
